FAERS Safety Report 9778963 (Version 1)
Quarter: 2013Q4

REPORT INFORMATION
  Report Type: Spontaneous
  Country: CO (occurrence: CO)
  Receive Date: 20131223
  Receipt Date: 20131223
  Transmission Date: 20140711
  Serious: Yes (Other)
  Sender: FDA-Public Use
  Company Number: CO-JNJFOC-20131212234

PATIENT
  Age: 23 Year
  Sex: Female

DRUGS (1)
  1. INFLIXIMAB, RECOMBINANT [Suspect]
     Indication: TAKAYASU^S ARTERITIS
     Route: 042

REACTIONS (2)
  - Angina pectoris [Unknown]
  - Off label use [Unknown]
